FAERS Safety Report 25137084 (Version 1)
Quarter: 2025Q1

REPORT INFORMATION
  Report Type: Spontaneous
  Country: US (occurrence: US)
  Receive Date: 20250328
  Receipt Date: 20250328
  Transmission Date: 20250409
  Serious: No
  Sender: AMPHASTAR
  Company Number: US-Amphastar Pharmaceuticals, Inc.-2173876

PATIENT
  Sex: Female

DRUGS (1)
  1. BAQSIMI [Suspect]
     Active Substance: GLUCAGON

REACTIONS (4)
  - Malaise [Unknown]
  - Headache [Unknown]
  - Nausea [Unknown]
  - Burning sensation [Unknown]

NARRATIVE: CASE EVENT DATE: 20241008
